FAERS Safety Report 8611397-0 (Version None)
Quarter: 2012Q3

REPORT INFORMATION
  Report Type: 
  Country: None (occurrence: None)
  Receive Date: 20120809
  Receipt Date: 20120803
  Transmission Date: 20120928
  Serious: Yes (Other)
  Sender: FDA-Public Use
  Company Number: DSA_53247_2012

PATIENT
  Age: 48 Year
  Sex: Female

DRUGS (3)
  1. LEUCOVORIN CALCIUM [Suspect]
     Indication: METASTASES TO LIVER
     Dosage: (DF)
  2. FLUOROURACIL [Suspect]
     Indication: METASTASES TO LIVER
     Dosage: (200 MG/M2, RAPIDLY) ; (400 MG/M2, CONTINUOUSLY)
  3. OXALIPLATIN [Suspect]
     Indication: METASTASES TO LIVER
     Dosage: (50 MG/M2)

REACTIONS (3)
  - DISEASE RECURRENCE [None]
  - DIARRHOEA [None]
  - METASTASES TO LIVER [None]
